FAERS Safety Report 5625524-0 (Version None)
Quarter: 2008Q1

REPORT INFORMATION
  Report Type: 
  Country: None (occurrence: None)
  Receive Date: 20080211
  Receipt Date: 20080211
  Transmission Date: 20080703
  Serious: Yes (Life-Threatening)
  Sender: FDA-Public Use
  Company Number: None

PATIENT
  Age: 41 Year
  Sex: Female
  Weight: 192 kg

DRUGS (2)
  1. HYDROMORPHONE HCL [Suspect]
     Indication: SPINAL LAMINECTOMY
     Dosage: 2-4 MG Q4H PRN  IV
     Route: 042
     Dates: start: 20070810, end: 20070810
  2. DIAZEPAM [Suspect]
     Indication: MUSCLE RELAXANT THERAPY
     Dosage: 2.5 MG  Q8H PRN  IV
     Route: 042

REACTIONS (1)
  - RESPIRATORY DEPRESSION [None]
